FAERS Safety Report 8440418-3 (Version None)
Quarter: 2012Q2

REPORT INFORMATION
  Report Type: 
  Country: None (occurrence: None)
  Receive Date: 20120615
  Receipt Date: 20120608
  Transmission Date: 20120825
  Serious: Yes (Hospitalization)
  Sender: FDA-Public Use
  Company Number: US-UCBSA-059406

PATIENT
  Age: 44 Year
  Sex: Male

DRUGS (1)
  1. CIMZIA [Suspect]

REACTIONS (7)
  - DRUG INEFFECTIVE [None]
  - ABDOMINAL ABSCESS [None]
  - FISTULA [None]
  - INTESTINAL STENOSIS [None]
  - ABDOMINAL PAIN [None]
  - WEIGHT DECREASED [None]
  - DIARRHOEA [None]
